FAERS Safety Report 9506648 (Version 1)
Quarter: 2013Q3

REPORT INFORMATION
  Report Type: Spontaneous
  Country: US (occurrence: US)
  Receive Date: 20130908
  Receipt Date: 20130908
  Transmission Date: 20140515
  Serious: Yes (Disabling)
  Sender: FDA-Public Use
  Company Number: US-MYLANLABS-2013S1019430

PATIENT
  Age: 41 Year
  Sex: Male

DRUGS (4)
  1. TACROLIMUS [Suspect]
     Indication: IMMUNOSUPPRESSANT DRUG THERAPY
     Route: 065
  2. MYCOPHENOLATE MOFETIL [Concomitant]
     Indication: IMMUNOSUPPRESSANT DRUG THERAPY
     Route: 065
  3. PREDNISONE [Concomitant]
     Indication: IMMUNOSUPPRESSANT DRUG THERAPY
     Dosage: TAPERED REGIMEN
     Route: 065
  4. NIFEDIPINE [Concomitant]
     Route: 065

REACTIONS (1)
  - Post transplant distal limb syndrome [Recovered/Resolved]
